FAERS Safety Report 6756980-2 (Version None)
Quarter: 2010Q2

REPORT INFORMATION
  Report Type: 
  Country: None (occurrence: None)
  Receive Date: 20100603
  Receipt Date: 20100603
  Transmission Date: 20101027
  Serious: Yes (Disabling)
  Sender: FDA-Public Use
  Company Number: None

PATIENT
  Age: 61 Year
  Sex: Female
  Weight: 70.3075 kg

DRUGS (2)
  1. METHYLPREDNISOLONE 4MG TAB [Suspect]
     Indication: BRONCHITIS
     Dosage: DAY 1-6; DAY 2-5; DAY 3-4; ETC DAILY PO
     Route: 048
     Dates: start: 20100514, end: 20100518
  2. METHYLPREDNISOLONE 4MG TAB [Suspect]
     Indication: COUGH
     Dosage: DAY 1-6; DAY 2-5; DAY 3-4; ETC DAILY PO
     Route: 048
     Dates: start: 20100514, end: 20100518

REACTIONS (1)
  - HERPES ZOSTER [None]
